FAERS Safety Report 17529616 (Version 1)
Quarter: 2020Q1

REPORT INFORMATION
  Report Type: Spontaneous
  Country: CA (occurrence: CA)
  Receive Date: 20200311
  Receipt Date: 20200311
  Transmission Date: 20200409
  Serious: Yes (Other)
  Sender: FDA-Public Use
  Company Number: CA-TEVA-2020-CA-1198745

PATIENT
  Age: 25 Year
  Sex: Female

DRUGS (8)
  1. FLOVENT [Concomitant]
     Active Substance: FLUTICASONE PROPIONATE
  2. SALBUTAMOL [Concomitant]
     Active Substance: ALBUTEROL
  3. CICLESONIDE [Concomitant]
     Active Substance: CICLESONIDE
  4. METHOTREXATE. [Suspect]
     Active Substance: METHOTREXATE
     Indication: RHEUMATOID ARTHRITIS
     Route: 065
  5. CELEBREX [Concomitant]
     Active Substance: CELECOXIB
  6. PANTOPRAZOLE MAGNESIUM [Concomitant]
     Active Substance: PANTOPRAZOLE MAGNESIUM
  7. FOLIC ACID. [Concomitant]
     Active Substance: FOLIC ACID
  8. FORMOTEROL [Concomitant]
     Active Substance: FORMOTEROL

REACTIONS (5)
  - Alopecia [Not Recovered/Not Resolved]
  - Injection site bruising [Not Recovered/Not Resolved]
  - Therapeutic product effect incomplete [Not Recovered/Not Resolved]
  - Injection site pain [Not Recovered/Not Resolved]
  - Nausea [Not Recovered/Not Resolved]
